FAERS Safety Report 5899896-6 (Version None)
Quarter: 2008Q3

REPORT INFORMATION
  Report Type: 
  Country: None (occurrence: None)
  Receive Date: 20080926
  Receipt Date: 20080922
  Transmission Date: 20090109
  Serious: Yes (Other)
  Sender: FDA-Public Use
  Company Number: US-ASTRAZENECA-2008AC02519

PATIENT
  Age: 33 Year
  Sex: Female

DRUGS (4)
  1. ESOMEPRAZOLE [Suspect]
     Indication: GASTROOESOPHAGEAL REFLUX DISEASE
  2. ESOMEPRAZOLE [Suspect]
  3. OMEPRAZOLE/SODIUM BICARBONATE [Suspect]
     Indication: GASTROOESOPHAGEAL REFLUX DISEASE
  4. CALCIUM CARBONATE [Concomitant]
     Indication: BLOOD CALCIUM
     Route: 048

REACTIONS (1)
  - HYPOCALCAEMIA [None]
